FAERS Safety Report 6283297-5 (Version None)
Quarter: 2009Q3

REPORT INFORMATION
  Report Type: 
  Country: None (occurrence: None)
  Receive Date: 20090724
  Receipt Date: 20090421
  Transmission Date: 20100115
  Serious: Yes (Death, Life-Threatening, Hospitalization)
  Sender: FDA-Public Use
  Company Number: GB-PFIZER INC-2009200207

PATIENT
  Age: 75 Year

DRUGS (11)
  1. BLINDED *NO SUBJECT DRUG [Suspect]
     Indication: COLORECTAL CANCER METASTATIC
     Dosage: 37.5 MG, 1X/DAY
     Route: 048
     Dates: start: 20090312
  2. BLINDED *PLACEBO [Suspect]
     Indication: COLORECTAL CANCER METASTATIC
     Dosage: 37.5 MG, 1X/DAY
     Route: 048
     Dates: start: 20090312
  3. BLINDED SUNITINIB MALATE [Suspect]
     Indication: COLORECTAL CANCER METASTATIC
     Dosage: 37.5 MG, 1X/DAY
     Route: 048
     Dates: start: 20090312
  4. IRINOTECAN HCL [Suspect]
     Indication: COLORECTAL CANCER METASTATIC
     Dosage: 230 MG
     Dates: start: 20090312
  5. FLUOROURACIL [Suspect]
     Indication: COLORECTAL CANCER METASTATIC
     Dosage: LOADING DOSE OF 521.6 MG
     Route: 042
     Dates: start: 20090312
  6. FLUOROURACIL [Suspect]
     Dosage: INFUSION DOSE OF 3215 MG
     Route: 042
     Dates: start: 20090312
  7. CALCIUM FOLINATE [Suspect]
     Indication: COLORECTAL CANCER METASTATIC
     Dosage: 650 MG,
     Route: 042
     Dates: start: 20090312
  8. BENDROFLUAZIDE [Concomitant]
     Indication: HYPERTENSION
     Dosage: 2.5 MG, 1X/DAY
     Dates: start: 20090410, end: 20090411
  9. METOCLOPRAMIDE [Concomitant]
     Indication: ARTHRITIS
     Dosage: 10 MG, AS NEEDED
     Dates: start: 20090416, end: 20090416
  10. TRAMADOL [Concomitant]
     Indication: ABDOMINAL PAIN
     Dosage: 50 MG, AS NEEDED
     Dates: start: 20090416, end: 20090418
  11. PARACETAMOL [Suspect]
     Indication: ABDOMINAL PAIN
     Dosage: 1 G, AS NEEDED
     Dates: start: 20090416, end: 20090418

REACTIONS (6)
  - GASTROINTESTINAL HAEMORRHAGE [None]
  - HAEMATEMESIS [None]
  - NEUTROPENIC SEPSIS [None]
  - PNEUMONIA ASPIRATION [None]
  - RENAL FAILURE ACUTE [None]
  - SMALL INTESTINAL OBSTRUCTION [None]
